FAERS Safety Report 23272047 (Version 1)
Quarter: 2023Q4

REPORT INFORMATION
  Report Type: Spontaneous
  Country: GB (occurrence: GB)
  Receive Date: 20231207
  Receipt Date: 20231207
  Transmission Date: 20240110
  Serious: Yes (Life-Threatening, Hospitalization, Other)
  Sender: FDA-Public Use
  Company Number: None

PATIENT
  Age: 20 Year
  Sex: Female

DRUGS (1)
  1. KEPPRA [Suspect]
     Active Substance: LEVETIRACETAM
     Indication: Epilepsy
     Dosage: UNK
     Dates: start: 20221010, end: 20231108

REACTIONS (6)
  - Depression [Recovered/Resolved]
  - Depression suicidal [Recovered/Resolved]
  - Anxiety [Unknown]
  - Eating disorder [Unknown]
  - Medication error [Unknown]
  - Maternal exposure during pregnancy [Unknown]

NARRATIVE: CASE EVENT DATE: 20221130
